FAERS Safety Report 9345037 (Version 2)
Quarter: 2013Q2

REPORT INFORMATION
  Report Type: Spontaneous
  Country: US (occurrence: US)
  Receive Date: 20130612
  Receipt Date: 20130627
  Transmission Date: 20140414
  Serious: Yes (Other)
  Sender: FDA-Public Use
  Company Number: US-009507513-1306USA001416

PATIENT
  Sex: Male
  Weight: 70.75 kg

DRUGS (12)
  1. PROVENTIL [Suspect]
     Indication: CHRONIC OBSTRUCTIVE PULMONARY DISEASE
     Dosage: 1 TO 2 PUFFS EVERY 4-6 HOURS
     Route: 055
     Dates: start: 2005
  2. ADVAIR [Concomitant]
     Dosage: ONE INHALATION, BID, RUSH AND RINSE MOUTH AFTER USE.
     Route: 055
  3. SPIRIVA [Concomitant]
     Dosage: 1 DF, QD
     Route: 055
  4. NEXIUM [Concomitant]
  5. LISINOPRIL [Concomitant]
     Dosage: 1 DF, QD
  6. CRESTOR [Concomitant]
     Dosage: 1 DF, QD
  7. PERPHENAZINE [Concomitant]
     Dosage: 2-10 MG TABLETS, HS
  8. ASPIRIN [Concomitant]
  9. OMEPRAZOLE [Concomitant]
     Dosage: 40 UNK, UNK
  10. OMEPRAZOLE [Concomitant]
     Dosage: UNK, QD
  11. ZOLPIDEM TARTRATE [Concomitant]
     Dosage: 1 DF BEDTIME, PRN
  12. CEFDINIR [Concomitant]
     Dosage: 1 CAPSULE, TWICE DAILY FOR 8 DAYS

REACTIONS (4)
  - Hypoaesthesia [Recovered/Resolved]
  - Abdominal discomfort [Recovered/Resolved]
  - Product quality issue [Unknown]
  - Wrong technique in drug usage process [Unknown]
